FAERS Safety Report 7057890-6 (Version None)
Quarter: 2010Q4

REPORT INFORMATION
  Report Type: 
  Country: None (occurrence: None)
  Receive Date: 20101021
  Receipt Date: 20101021
  Transmission Date: 20110411
  Serious: Yes (Other)
  Sender: FDA-Public Use
  Company Number: None

PATIENT
  Age: 49 Year
  Sex: Male
  Weight: 68.4932 kg

DRUGS (2)
  1. NEURONTIN [Suspect]
     Indication: HYPOAESTHESIA
     Dosage: 300 MG 4 TIMES A DAY PO
     Route: 048
     Dates: start: 20100805, end: 20101017
  2. NEURONTIN [Suspect]
     Indication: NEUROPATHY PERIPHERAL
     Dosage: 300 MG 4 TIMES A DAY PO
     Route: 048
     Dates: start: 20100805, end: 20101017

REACTIONS (10)
  - ANXIETY [None]
  - BLOOD CREATININE INCREASED [None]
  - CHILLS [None]
  - COLD SWEAT [None]
  - CRYING [None]
  - DRUG INEFFECTIVE [None]
  - DRUG WITHDRAWAL SYNDROME [None]
  - SUICIDAL IDEATION [None]
  - TREMOR [None]
  - WHEEZING [None]
